FAERS Safety Report 16187956 (Version 1)
Quarter: 2019Q2

REPORT INFORMATION
  Report Type: Spontaneous
  Country: ES (occurrence: ES)
  Receive Date: 20190412
  Receipt Date: 20190412
  Transmission Date: 20190711
  Serious: Yes (Hospitalization, Other)
  Sender: FDA-Public Use
  Company Number: ES-ALKEM LABORATORIES LIMITED-ES-ALKEM-2018-04402

PATIENT
  Age: 67 Year
  Sex: Male

DRUGS (9)
  1. BIPERIDEN [Interacting]
     Active Substance: BIPERIDEN
     Dosage: 8 MG, QD, BE INCREASED FOR 4 DAYS
     Route: 048
     Dates: start: 201612
  2. FLUPHENAZINE DECANOATE. [Suspect]
     Active Substance: FLUPHENAZINE DECANOATE
     Indication: SCHIZOPHRENIA
     Dosage: 1 VIAL OF 25 MG, EVERY 4 WEEKS
     Route: 065
  3. DIAZEPAM. [Suspect]
     Active Substance: DIAZEPAM
     Indication: EXTRAPYRAMIDAL DISORDER
     Dosage: 5 MG, QD
     Dates: start: 201612
  4. ATORVASTATIN (AS CALCIUM TRIHYDRATE) [Suspect]
     Active Substance: ATORVASTATIN
     Indication: DYSLIPIDAEMIA
     Dosage: 10 MG, QD
     Route: 065
     Dates: start: 201305
  5. QUETIAPINE FUMARATE. [Suspect]
     Active Substance: QUETIAPINE FUMARATE
     Indication: SCHIZOPHRENIA
     Dosage: 300 MG, QD
     Route: 065
  6. DIAZEPAM. [Suspect]
     Active Substance: DIAZEPAM
     Dosage: 7.5 MG, MORE OF DIAZEPAM WAS ADMINISTERED
     Route: 065
  7. QUETIAPINE FUMARATE. [Suspect]
     Active Substance: QUETIAPINE FUMARATE
     Dosage: 200 MG, QD
     Route: 065
  8. BIPERIDEN [Interacting]
     Active Substance: BIPERIDEN
     Indication: EXTRAPYRAMIDAL DISORDER
     Dosage: 1 VIAL OF 5 MG, EVERY 4 WEEKS
     Route: 065
  9. BIPERIDEN [Interacting]
     Active Substance: BIPERIDEN
     Indication: SCHIZOPHRENIA
     Dosage: 4 MG SLOW RELEASE, 1 TABLET EVERY 24 HOURS
     Route: 065

REACTIONS (3)
  - Rhabdomyolysis [Recovered/Resolved]
  - Neuromuscular toxicity [Recovered/Resolved]
  - Drug interaction [Recovered/Resolved]

NARRATIVE: CASE EVENT DATE: 201612
